FAERS Safety Report 10207774 (Version 1)
Quarter: 2014Q2

REPORT INFORMATION
  Report Type: Spontaneous
  Country: US (occurrence: None)
  Receive Date: 20140529
  Receipt Date: 20140529
  Transmission Date: 20141212
  Serious: Yes (Hospitalization, Disabling, Other)
  Sender: FDA-Public Use
  Company Number: None

PATIENT
  Age: 41 Year
  Sex: Female
  Weight: 63.96 kg

DRUGS (1)
  1. LEVAQUIN [Suspect]
     Indication: SINUSITIS
     Dosage: 1 PILL ONCE DAILY TAKEN BY MOUTH
     Route: 048
     Dates: start: 20140310, end: 20140311

REACTIONS (12)
  - Anxiety [None]
  - Hallucination, auditory [None]
  - Confusional state [None]
  - Headache [None]
  - Dizziness [None]
  - Tinnitus [None]
  - Visual field defect [None]
  - Strabismus [None]
  - Facial pain [None]
  - Pain in jaw [None]
  - Ear pain [None]
  - Neck pain [None]
